FAERS Safety Report 25653098 (Version 1)
Quarter: 2025Q3

REPORT INFORMATION
  Report Type: Report from Study
  Country: US (occurrence: US)
  Receive Date: 20250807
  Receipt Date: 20250807
  Transmission Date: 20251021
  Serious: Yes (Other)
  Sender: AMGEN
  Company Number: US-AMGEN-USASL2025153406

PATIENT
  Age: 74 Year
  Sex: Male

DRUGS (4)
  1. KRYSTEXXA [Suspect]
     Active Substance: PEGLOTICASE
     Indication: Gouty tophus
     Dosage: UNK UNK, Q2WK
     Route: 065
     Dates: start: 20241009
  2. KRYSTEXXA [Suspect]
     Active Substance: PEGLOTICASE
     Dosage: UNK UNK, Q2WK
     Route: 065
     Dates: start: 20250625, end: 20250625
  3. METHOTREXATE [Suspect]
     Active Substance: METHOTREXATE
     Indication: Product used for unknown indication
     Route: 065
  4. ALLOPURINOL [Suspect]
     Active Substance: ALLOPURINOL
     Indication: Product used for unknown indication
     Route: 065

REACTIONS (4)
  - Musculoskeletal disorder [Not Recovered/Not Resolved]
  - Muscle atrophy [Unknown]
  - Muscular weakness [Unknown]
  - Weight decreased [Unknown]
